FAERS Safety Report 16787662 (Version 3)
Quarter: 2019Q3

REPORT INFORMATION
  Report Type: Report from Study
  Country: DE (occurrence: DE)
  Receive Date: 20190909
  Receipt Date: 20190927
  Transmission Date: 20191005
  Serious: Yes (Hospitalization)
  Sender: FDA-Public Use
  Company Number: DE-SHIRE-DE201928211

PATIENT

DRUGS (2)
  1. HUMAN IMMUNOGLOBULIN; HYALURONIDASE [Suspect]
     Active Substance: HUMAN IMMUNOGLOBULIN G\HYALURONIDASE RECOMBINANT HUMAN
     Indication: PYODERMA GANGRENOSUM
     Dosage: 140 GRAM, 1X A MONTH, DISTRIBUTED OVER 5 DAYS
     Route: 058
     Dates: start: 20190726, end: 20190822
  2. HUMAN IMMUNOGLOBULIN; HYALURONIDASE [Suspect]
     Active Substance: HUMAN IMMUNOGLOBULIN G\HYALURONIDASE RECOMBINANT HUMAN
     Dosage: 140 GRAM, 1X A MONTH, DISTRIBUTED OVER 5 DAYS
     Route: 058
     Dates: start: 20190822, end: 20190822

REACTIONS (5)
  - Lethargy [Recovering/Resolving]
  - General physical health deterioration [Recovered/Resolved]
  - Injection site extravasation [Recovered/Resolved]
  - Pyrexia [Recovered/Resolved]
  - Fatigue [Recovered/Resolved]

NARRATIVE: CASE EVENT DATE: 20190822
